FAERS Safety Report 26054207 (Version 1)
Quarter: 2025Q4

REPORT INFORMATION
  Report Type: Spontaneous
  Country: US (occurrence: None)
  Receive Date: 20251117
  Receipt Date: 20251117
  Transmission Date: 20260117
  Serious: Yes (Hospitalization)
  Sender: FDA-CTU
  Company Number: None

PATIENT
  Sex: Male

DRUGS (8)
  1. VYNDAMAX [Suspect]
     Active Substance: TAFAMIDIS
     Indication: Acquired ATTR amyloidosis
     Dosage: FREQUENCY : DAILY;?
     Route: 048
     Dates: start: 20250328
  2. ELIQUIS [Concomitant]
     Active Substance: APIXABAN
  3. ELIQUIS [Concomitant]
     Active Substance: APIXABAN
  4. MULTI-VITAMN TAB [Concomitant]
  5. THIAMINE HGL TAB 100MG [Concomitant]
  6. TRELEGY AER 100MGG [Concomitant]
  7. VITAM1N B-12TAB 2000MGG [Concomitant]
  8. VITAMIN D GAP 400UNIT [Concomitant]

REACTIONS (1)
  - Clostridium difficile infection [None]
